FAERS Safety Report 10549063 (Version 1)
Quarter: 2014Q4

REPORT INFORMATION
  Report Type: Spontaneous
  Country: US (occurrence: None)
  Receive Date: 20141015
  Receipt Date: 20141015
  Transmission Date: 20150529
  Serious: No
  Sender: FDA-Public Use
  Company Number: 2014US003442

PATIENT
  Age: 57 Year
  Sex: Female

DRUGS (11)
  1. MAGNESIUM OXIDE. [Concomitant]
     Active Substance: MAGNESIUM OXIDE
  2. VALIUM(DIAZEPAM) [Concomitant]
  3. VALTREX(VALACICLOVIR HYDROCHLORIDE) [Concomitant]
  4. FOLIC ACID. [Concomitant]
     Active Substance: FOLIC ACID
  5. CYMBALTA(DULOXETINE HYDROCHLORIDE) [Concomitant]
  6. INVEGA(PALIPERIDONE) [Concomitant]
  7. VENTOLIN HFA [Concomitant]
     Active Substance: ALBUTEROL SULFATE
  8. ICLUSIG [Suspect]
     Active Substance: PONATINIB
     Indication: CHRONIC MYELOID LEUKAEMIA
     Route: 048
  9. FENTANYL(FENTANYL CITRATE) [Concomitant]
  10. METFORMIN HCL (METFORMIN HYDROCHLORIDE) [Concomitant]
  11. OXYCONTIN(OXYCODONE HYDROCHLORIDE) [Concomitant]

REACTIONS (1)
  - Blood pressure increased [None]
